FAERS Safety Report 13998824 (Version 1)
Quarter: 2017Q3

REPORT INFORMATION
  Report Type: Not Available
  Country: US (occurrence: US)
  Receive Date: 20170921
  Receipt Date: 20170921
  Transmission Date: 20171128
  Serious: No
  Sender: FDA-Public Use
  Company Number: US-NEUROCRINE BIOSCIENCES INC.-2017NBI00601

PATIENT
  Age: 59 Year

DRUGS (4)
  1. INGREZZA [Suspect]
     Active Substance: VALBENAZINE
     Indication: PRODUCT USED FOR UNKNOWN INDICATION
     Route: 048
     Dates: start: 20170710, end: 2017
  2. HALOPERIDOL. [Concomitant]
     Active Substance: HALOPERIDOL
  3. BENZTROPINE [Concomitant]
     Active Substance: BENZTROPINE
  4. DEPAKOTE [Concomitant]
     Active Substance: DIVALPROEX SODIUM

REACTIONS (1)
  - Trismus [Unknown]

NARRATIVE: CASE EVENT DATE: 20170804
